FAERS Safety Report 7387327-9 (Version None)
Quarter: 2011Q1

REPORT INFORMATION
  Report Type: 
  Country: None (occurrence: None)
  Receive Date: 20110331
  Receipt Date: 20110105
  Transmission Date: 20110831
  Serious: Yes (Hospitalization, Other)
  Sender: FDA-Public Use
  Company Number: IT-BRISTOL-MYERS SQUIBB COMPANY-15625080

PATIENT
  Age: 70 Year
  Sex: Female

DRUGS (4)
  1. TRIMETON [Concomitant]
     Dosage: 1 DF: 10MG/1ML
  2. URBASON [Concomitant]
     Dosage: STRENGTH 20 MG/ML
  3. IRINOTECAN HCL [Suspect]
     Indication: COLON CANCER
     Dosage: IRINOTECAN HOSPIRA
     Route: 042
     Dates: start: 20101007, end: 20101028
  4. ERBITUX [Suspect]
     Indication: COLON CANCER
     Route: 042
     Dates: start: 20101007, end: 20101028

REACTIONS (4)
  - ENTEROCUTANEOUS FISTULA [None]
  - ABDOMINAL ABSCESS [None]
  - HYPERPYREXIA [None]
  - DIARRHOEA [None]
